FAERS Safety Report 5239104-2 (Version None)
Quarter: 2007Q1

REPORT INFORMATION
  Report Type: 
  Country: None (occurrence: None)
  Receive Date: 20070209
  Receipt Date: 20070130
  Transmission Date: 20070707
  Serious: Yes (Death)
  Sender: FDA-Public Use
  Company Number: GXKR2007GB01317

PATIENT
  Age: 74 Year
  Sex: Female

DRUGS (4)
  1. TRIMETHOPRIM [Suspect]
     Indication: URINARY TRACT INFECTION
     Dosage: 150 MG, ORAL
     Route: 048
     Dates: start: 20050830, end: 20050902
  2. METHOTREXATE [Suspect]
     Indication: RHEUMATOID ARTHRITIS
     Dosage: QW
  3. CIPROFLOXACIN [Concomitant]
  4. FOLINIC ACID (FOLINIC ACID) [Concomitant]

REACTIONS (8)
  - CLOSTRIDIAL INFECTION [None]
  - CONTRAINDICATION TO MEDICAL TREATMENT [None]
  - DIARRHOEA [None]
  - DRUG INTERACTION [None]
  - KLEBSIELLA SEPSIS [None]
  - NEUTROPENIC SEPSIS [None]
  - SEPTIC SHOCK [None]
  - STAPHYLOCOCCAL INFECTION [None]
